FAERS Safety Report 21209365 (Version 1)
Quarter: 2022Q3

REPORT INFORMATION
  Report Type: Spontaneous
  Country: US (occurrence: None)
  Receive Date: 20220813
  Receipt Date: 20220813
  Transmission Date: 20221026
  Serious: No
  Sender: FDA-Public Use
  Company Number: 2022A256682

PATIENT
  Age: 946 Month
  Sex: Male
  Weight: 90.7 kg

DRUGS (2)
  1. BUDESONIDE\FORMOTEROL\GLYCOPYRRONIUM [Suspect]
     Active Substance: BUDESONIDE\FORMOTEROL\GLYCOPYRRONIUM
     Dosage: 160/9/4.8 MCG 120 INHALATIONS UNITS,2 PUFFS 2 TIMES A DAY
     Route: 055
     Dates: start: 2020
  2. SYMBICORT [Suspect]
     Active Substance: BUDESONIDE\FORMOTEROL FUMARATE DIHYDRATE
     Route: 055

REACTIONS (10)
  - Body height decreased [Unknown]
  - Dyspnoea [Unknown]
  - Weight fluctuation [Unknown]
  - Cough [Unknown]
  - Device use issue [Unknown]
  - Incorrect dose administered by device [Unknown]
  - Prescription drug used without a prescription [Unknown]
  - Drug dose omission by device [Unknown]
  - Wrong technique in device usage process [Unknown]
  - Device leakage [Unknown]

NARRATIVE: CASE EVENT DATE: 20220601
